FAERS Safety Report 10559942 (Version 1)
Quarter: 2014Q4

REPORT INFORMATION
  Report Type: Spontaneous
  Country: US (occurrence: None)
  Receive Date: 20141031
  Receipt Date: 20141031
  Transmission Date: 20150529
  Serious: Yes (Other)
  Sender: FDA-Public Use
  Company Number: None

PATIENT
  Age: 67 Year
  Sex: Male

DRUGS (1)
  1. CAPECITAGINE 500MG TABS [Suspect]
     Active Substance: CAPECITABINE
     Indication: COLON CANCER
     Route: 048
     Dates: start: 20141013, end: 20141025

REACTIONS (4)
  - Skin exfoliation [None]
  - Rash [None]
  - Peripheral swelling [None]
  - Diarrhoea [None]

NARRATIVE: CASE EVENT DATE: 20141013
